FAERS Safety Report 21068807 (Version 1)
Quarter: 2022Q3

REPORT INFORMATION
  Report Type: Report from Study
  Country: US (occurrence: US)
  Receive Date: 20220712
  Receipt Date: 20220712
  Transmission Date: 20221027
  Serious: Yes (Hospitalization)
  Sender: FDA-Public Use
  Company Number: US-Global Blood Therapeutics Inc-US-GBT-21-02261

PATIENT
  Age: 32 Year
  Sex: Female
  Weight: 63.5 kg

DRUGS (7)
  1. OXBRYTA [Suspect]
     Active Substance: VOXELOTOR
     Indication: Sickle cell disease
     Route: 048
     Dates: start: 20200331
  2. BUPRENOPHINE HCL (SUBUTEX) [Concomitant]
     Indication: Sickle cell disease
     Route: 048
     Dates: start: 20210118
  3. ERGOCALCIFEROL (VITAMIN D2) [Concomitant]
     Active Substance: ERGOCALCIFEROL
     Indication: Vitamin D deficiency
     Route: 048
     Dates: start: 20210118
  4. FOLIC ACID (FOLVITE) TABLET [Concomitant]
     Indication: Sickle cell disease
     Route: 048
     Dates: start: 20210808
  5. HYDROXYUREA (HYDREA) [Concomitant]
     Indication: Sickle cell disease
     Route: 048
     Dates: start: 20140715
  6. ROXICODONE [Concomitant]
     Active Substance: OXYCODONE HYDROCHLORIDE
     Indication: Pain
     Route: 048
     Dates: start: 20200504
  7. POTASSIUM CHLORIDE [Concomitant]
     Active Substance: POTASSIUM CHLORIDE
     Indication: Sickle cell disease
     Route: 048
     Dates: start: 20191007

REACTIONS (2)
  - Pulmonary embolism [Recovered/Resolved]
  - Sickle cell anaemia with crisis [Recovered/Resolved]

NARRATIVE: CASE EVENT DATE: 20200529
